FAERS Safety Report 19939491 (Version 1)
Quarter: 2021Q4

REPORT INFORMATION
  Report Type: Spontaneous
  Country: US (occurrence: US)
  Receive Date: 20211011
  Receipt Date: 20211011
  Transmission Date: 20220303
  Serious: No
  Sender: FDA-Public Use
  Company Number: US-NOVARTISTESTPH-NVSC2021US228785

PATIENT

DRUGS (3)
  1. ZARXIO [Suspect]
     Active Substance: FILGRASTIM-SNDZ
     Indication: Product used for unknown indication
     Dosage: 480 MCG
     Route: 065
     Dates: start: 20210911
  2. ZARXIO [Suspect]
     Active Substance: FILGRASTIM-SNDZ
     Dosage: 3 DF
     Route: 065
     Dates: start: 20210926
  3. ZARXIO [Suspect]
     Active Substance: FILGRASTIM-SNDZ
     Dosage: 3 DF
     Route: 065

REACTIONS (2)
  - White blood cell count abnormal [Unknown]
  - Neutrophil count abnormal [Unknown]
